FAERS Safety Report 6670633-0 (Version None)
Quarter: 2010Q2

REPORT INFORMATION
  Report Type: 
  Country: None (occurrence: None)
  Receive Date: 20100407
  Receipt Date: 20100323
  Transmission Date: 20101027
  Serious: Yes (Other)
  Sender: FDA-Public Use
  Company Number: MX-TYCO HEALTHCARE/MALLINCKRODT-T201000911

PATIENT
  Age: 44 Year

DRUGS (3)
  1. CONRAY [Suspect]
     Indication: COMPUTERISED TOMOGRAM
     Dosage: 90 ML, SINGLE
     Route: 048
  2. CONRAY [Suspect]
     Dosage: UNK
  3. CONRAY 30 [Suspect]
     Indication: COMPUTERISED TOMOGRAM
     Dosage: 300 ML, SINGLE
     Route: 042

REACTIONS (3)
  - ESCHERICHIA SEPSIS [None]
  - INCORRECT ROUTE OF DRUG ADMINISTRATION [None]
  - PANCREATIC ABSCESS [None]
